FAERS Safety Report 6912969-1 (Version None)
Quarter: 2010Q3

REPORT INFORMATION
  Report Type: 
  Country: None (occurrence: None)
  Receive Date: 20100806
  Receipt Date: 20100727
  Transmission Date: 20110219
  Serious: Yes (Hospitalization)
  Sender: FDA-Public Use
  Company Number: US-ABBOTT-10P-163-0645840-00

PATIENT
  Age: 58 Year
  Sex: Male
  Weight: 86.941 kg

DRUGS (15)
  1. TRICOR [Suspect]
     Indication: HYPERCHOLESTEROLAEMIA
     Route: 048
     Dates: start: 20091212, end: 20100101
  2. UNKNOWN BLINDED [Suspect]
     Indication: PRODUCT USED FOR UNKNOWN INDICATION
  3. COZAAR [Suspect]
     Indication: HYPERTENSION
     Route: 048
     Dates: start: 20091212, end: 20100101
  4. IMDUR [Concomitant]
     Indication: CARDIAC DISORDER
     Dates: start: 20100107, end: 20100110
  5. IRON [Concomitant]
     Indication: MINERAL SUPPLEMENTATION
     Dates: start: 20090801
  6. BENICAR HCT [Concomitant]
     Indication: CARDIAC DISORDER
     Dosage: 40MG/25MG BID
     Dates: start: 20080301
  7. ACETYLSALICYLIC ACID SRT [Concomitant]
     Indication: PROPHYLAXIS
     Dates: start: 20090801
  8. NEURONTIN [Concomitant]
     Indication: NEUROPATHY PERIPHERAL
     Dates: start: 20080301
  9. INSULINS AND ANALOGUES [Concomitant]
     Indication: DIABETES MELLITUS
     Dosage: INSULIN 30/70 BID
     Dates: start: 20080301
  10. NORVASC [Concomitant]
     Indication: HYPERTENSION
     Dates: start: 20100101
  11. METOPROLOL [Concomitant]
     Indication: HYPERTENSION
     Dates: start: 20070301, end: 20100101
  12. PERCOCET [Concomitant]
     Indication: HEADACHE
     Dates: start: 20100101, end: 20100101
  13. EPOGEN [Concomitant]
     Indication: RED BLOOD CELL COUNT DECREASED
     Dates: start: 20100112
  14. TOPROL-XL [Concomitant]
     Indication: PRODUCT USED FOR UNKNOWN INDICATION
     Dates: start: 20100110
  15. TRAZODONE [Concomitant]
     Indication: PRODUCT USED FOR UNKNOWN INDICATION
     Dates: start: 20100110

REACTIONS (4)
  - BLOOD CREATINE PHOSPHOKINASE INCREASED [None]
  - BLOOD CREATININE INCREASED [None]
  - HYPERTENSION [None]
  - RENAL FAILURE CHRONIC [None]
